FAERS Safety Report 8234016-4 (Version None)
Quarter: 2012Q1

REPORT INFORMATION
  Report Type: 
  Country: None (occurrence: None)
  Receive Date: 20120326
  Receipt Date: 20120314
  Transmission Date: 20120608
  Serious: Yes (Hospitalization)
  Sender: FDA-Public Use
  Company Number: US-MYLANLABS-2012S1005737

PATIENT
  Age: 60 Year
  Sex: Male
  Weight: 72.58 kg

DRUGS (6)
  1. CARVEDILOL [Concomitant]
  2. VARENICLINE [Suspect]
     Indication: SMOKING CESSATION THERAPY
     Route: 048
     Dates: start: 20120206, end: 20120209
  3. LISINOPRIL [Concomitant]
     Indication: BLOOD PRESSURE INCREASED
  4. CHLORTHALIDONE [Suspect]
     Route: 048
  5. ATORVASTATIN [Concomitant]
  6. AMLODIPINE BESYLATE [Concomitant]

REACTIONS (1)
  - HEART RATE DECREASED [None]
